FAERS Safety Report 24603439 (Version 1)
Quarter: 2024Q4

REPORT INFORMATION
  Report Type: Spontaneous
  Country: US (occurrence: US)
  Receive Date: 20241111
  Receipt Date: 20241111
  Transmission Date: 20250115
  Serious: No
  Sender: LUPIN
  Company Number: US-LUPIN PHARMACEUTICALS INC.-2024-10905

PATIENT

DRUGS (3)
  1. TESTOSTERONE GEL 1.62% [Suspect]
     Active Substance: TESTOSTERONE
     Indication: Anxiety
     Dosage: UNK, QD, 2 PUMPS
     Route: 065
     Dates: start: 20241013
  2. TESTOSTERONE GEL 1.62% [Suspect]
     Active Substance: TESTOSTERONE
     Indication: Asthenia
     Dosage: UNK, QD, 1 PUMP
     Route: 065
     Dates: start: 20241013
  3. LEXAPRO [Concomitant]
     Active Substance: ESCITALOPRAM OXALATE
     Indication: Anxiety
     Dosage: UNK
     Route: 065

REACTIONS (2)
  - Anxiety [Recovered/Resolved]
  - Product use in unapproved indication [Unknown]
